FAERS Safety Report 7716481-1 (Version None)
Quarter: 2011Q3

REPORT INFORMATION
  Report Type: 
  Country: None (occurrence: None)
  Receive Date: 20110829
  Receipt Date: 20110818
  Transmission Date: 20111222
  Serious: Yes (Other)
  Sender: FDA-Public Use
  Company Number: CN-ASTRAZENECA-2011SE49441

PATIENT
  Sex: Male

DRUGS (5)
  1. LIDOCAINE [Suspect]
     Dosage: INCREMENT OF 50 MG TO LARGER DOSE
     Route: 065
  2. LIDOCAINE [Suspect]
     Indication: ASTHMA
     Route: 065
  3. ANTI-INFLAMMATORY AGENTS [Concomitant]
  4. LIDOCAINE [Suspect]
     Dosage: DOSE REDUCED
     Route: 065
  5. ANTI-ASTHMATIC AGENT/EXPECTORANT [Concomitant]

REACTIONS (1)
  - BRONCHOSPASM [None]
